FAERS Safety Report 9781232 (Version 2)
Quarter: 2014Q1

REPORT INFORMATION
  Report Type: Report from Study
  Country: IT (occurrence: IT)
  Receive Date: 20131224
  Receipt Date: 20140106
  Transmission Date: 20141002
  Serious: Yes (Death, Life-Threatening)
  Sender: FDA-Public Use
  Company Number: IT-SA-2013SA132888

PATIENT
  Age: 52 Year
  Sex: Female
  Weight: 65 kg

DRUGS (2)
  1. CLOFARABINE [Suspect]
     Indication: ACUTE LYMPHOCYTIC LEUKAEMIA
     Dosage: ROUTE REPORTED AS EV
     Route: 042
     Dates: start: 20131204, end: 20131208
  2. CYCLOPHOSPHAMIDE [Suspect]
     Indication: ACUTE LYMPHOCYTIC LEUKAEMIA
     Dosage: ROUTE REPORTED AS EV
     Route: 042
     Dates: start: 20131204, end: 20131208

REACTIONS (2)
  - Depressed level of consciousness [Fatal]
  - Renal failure acute [Fatal]
